FAERS Safety Report 4861790-7 (Version None)
Quarter: 2005Q4

REPORT INFORMATION
  Report Type: 
  Country: None (occurrence: None)
  Receive Date: 20051220
  Receipt Date: 20050926
  Transmission Date: 20060501
  Serious: Yes (Death, Hospitalization)
  Sender: FDA-Public Use
  Company Number: US-MERCK-0509USA04151

PATIENT
  Age: 65 Year
  Sex: Female
  Weight: 91 kg

DRUGS (14)
  1. VIOXX [Suspect]
     Indication: OSTEOARTHRITIS
     Route: 048
     Dates: start: 19990623, end: 20040922
  2. VIOXX [Suspect]
     Route: 048
     Dates: start: 19990623, end: 20040922
  3. DARVOCET-N 100 [Concomitant]
     Indication: PAIN
     Route: 065
     Dates: start: 19950323, end: 20040922
  4. PRAZOSIN-BC [Concomitant]
     Indication: HYPERTENSION
     Route: 065
     Dates: start: 19950327, end: 20040922
  5. PINDOLOL [Concomitant]
     Indication: HYPERTENSION
     Route: 065
     Dates: start: 19960826, end: 20040922
  6. SYNTHROID [Concomitant]
     Indication: THYROID DISORDER
     Route: 065
     Dates: start: 20010815, end: 20040630
  7. STARLIX [Concomitant]
     Indication: DIABETES MELLITUS
     Route: 065
  8. VOLTAREN [Concomitant]
     Indication: PAIN
     Route: 065
     Dates: start: 19960831, end: 20040922
  9. PROPOXYPHENE HYDROCHLORIDE [Concomitant]
     Indication: PAIN
     Route: 065
     Dates: start: 19960827, end: 20040922
  10. AVANDIA [Concomitant]
     Indication: DIABETES MELLITUS
     Route: 065
  11. DIABETA [Concomitant]
     Indication: DIABETES MELLITUS
     Route: 065
  12. GLUCOPHAGE [Concomitant]
     Indication: DIABETES MELLITUS
     Route: 065
  13. RELAFEN [Concomitant]
     Indication: PAIN
     Route: 065
     Dates: start: 19990901, end: 20000920
  14. ALPRAZOLAM [Concomitant]
     Indication: ANXIETY
     Route: 065

REACTIONS (11)
  - BACTERIAL INFECTION [None]
  - CATARACT [None]
  - DEATH [None]
  - DYSPNOEA [None]
  - HYPERCHOLESTEROLAEMIA [None]
  - HYPERKALAEMIA [None]
  - HYPOTHYROIDISM [None]
  - INCOHERENT [None]
  - INSOMNIA [None]
  - MYOCARDIAL INFARCTION [None]
  - OEDEMA PERIPHERAL [None]
